FAERS Safety Report 5235471-4 (Version None)
Quarter: 2007Q1

REPORT INFORMATION
  Report Type: 
  Country: None (occurrence: None)
  Receive Date: 20070212
  Receipt Date: 20070130
  Transmission Date: 20070707
  Serious: Yes (Other)
  Sender: FDA-Public Use
  Company Number: PHEH2007US01535

PATIENT
  Age: 68 Year
  Sex: Female

DRUGS (2)
  1. NEURONTIN [Suspect]
     Indication: CONVULSION
     Dates: start: 19920101
  2. TEGRETOL [Suspect]
     Indication: CONVULSION
     Dosage: 800 MG ALTERNATING QOD WITH 600 MG QOD
     Dates: start: 19820101

REACTIONS (1)
  - SJOGREN'S SYNDROME [None]
